FAERS Safety Report 5038324-X (Version None)
Quarter: 2006Q2

REPORT INFORMATION
  Report Type: 
  Country: None (occurrence: None)
  Receive Date: 20060601
  Receipt Date: 20060109
  Transmission Date: 20061013
  Serious: No
  Sender: FDA-Public Use
  Company Number: 2006PV006818

PATIENT
  Sex: Female

DRUGS (1)
  1. BYETTA IJECTION (0.25 MG/ML) [Suspect]
     Indication: DRUG USE FOR UNKNOWN INDICATION
     Dosage: 5 MCG SC
     Route: 058
     Dates: start: 20040101

REACTIONS (1)
  - INJECTION SITE URTICARIA [None]
